FAERS Safety Report 24323168 (Version 1)
Quarter: 2024Q3

REPORT INFORMATION
  Report Type: Spontaneous
  Country: GB (occurrence: GB)
  Receive Date: 20240916
  Receipt Date: 20240916
  Transmission Date: 20241017
  Serious: Yes (Other)
  Sender: TEVA
  Company Number: GB-MHRA-TPP36551856C7947464YC1725553051760

PATIENT
  Age: 85 Year
  Sex: Male
  Weight: 95 kg

DRUGS (15)
  1. LEVOFLOXACIN [Suspect]
     Active Substance: LEVOFLOXACIN
     Indication: Ill-defined disorder
     Route: 065
     Dates: start: 20240829
  2. HYDROXOCOBALAMIN [Concomitant]
     Active Substance: HYDROXOCOBALAMIN
     Indication: Ill-defined disorder
     Dosage: IM INJECTION EVERY 3MONTHS, TPP YC - PLEASE RECLASSIFY
     Route: 030
     Dates: start: 20240621
  3. ALBUTEROL [Concomitant]
     Active Substance: ALBUTEROL
     Indication: Ill-defined disorder
     Dosage: INHALE 2 DOSES AS NEEDED. ONCE THIS INHALER IS., TPP YC - PLEASE RECLASSIFY
     Route: 065
     Dates: start: 20221214
  4. AMLODIPINE [Concomitant]
     Active Substance: AMLODIPINE BESYLATE
     Indication: Ill-defined disorder
     Dosage: TAKE ONE DAILY FOR BLOOD PRESSURE, TPP YC - PLEASE RECLASSIFY
     Route: 065
     Dates: start: 20240829
  5. DOXYCYCLINE [Concomitant]
     Active Substance: DOXYCYCLINE\DOXYCYCLINE HYCLATE
     Indication: Ill-defined disorder
     Dosage: TWO NOW THEN ONE DAILY, TPP YC - PLEASE RECLASSIFY
     Route: 065
     Dates: start: 20240904
  6. TAMSULOSIN HYDROCHLORIDE [Concomitant]
     Active Substance: TAMSULOSIN HYDROCHLORIDE
     Indication: Ill-defined disorder
     Dosage: TAKE ONE DAILY, TPP YC - PLEASE RECLASSIFY
     Route: 065
     Dates: start: 20221214
  7. MIRABEGRON [Concomitant]
     Active Substance: MIRABEGRON
     Indication: Ill-defined disorder
     Dosage: TAKE ONE DAILY (6PM) FOR BLADDER OVERACTIVITY, TPP YC - PLEASE RECLASSIFY
     Route: 065
     Dates: start: 20221214
  8. AMOXICILLIN [Concomitant]
     Active Substance: AMOXICILLIN
     Indication: Ill-defined disorder
     Dosage: TIME INTERVAL: 0.33333333 DAYS: TAKE ONE CAPSULE THREE TIMES A DAY FOR 14 DAYS, TPP YC - PLEASE R...
     Route: 065
     Dates: start: 20240729, end: 20240812
  9. LEVOTHYROXINE [Concomitant]
     Active Substance: LEVOTHYROXINE\LEVOTHYROXINE SODIUM
     Indication: Ill-defined disorder
     Dosage: TAKE TWO EACH MORNING, TOTAL DOSE 200MCG A DAY
     Route: 065
     Dates: start: 20221214
  10. ACLIDINIUM BROMIDE [Concomitant]
     Active Substance: ACLIDINIUM BROMIDE
     Indication: Ill-defined disorder
     Dosage: ONCE A DAY, TPP YC - PLEASE RECLASSIFY
     Route: 065
     Dates: start: 20221214
  11. MOMETASONE [Concomitant]
     Active Substance: MOMETASONE
     Indication: Ill-defined disorder
     Dosage: APPLY DAILY, TPP YC - PLEASE RECLASSIFY
     Route: 065
     Dates: start: 20240624, end: 20240722
  12. SOLIFENACIN [Concomitant]
     Active Substance: SOLIFENACIN
     Indication: Ill-defined disorder
     Dosage: TAKE ONE DAILY FOR BLADDER OVERACTIVITY, TPP YC - PLEASE RECLASSIFY
     Route: 065
     Dates: start: 20221214
  13. CARBOCYSTEINE [Concomitant]
     Active Substance: CARBOCYSTEINE
     Indication: Ill-defined disorder
     Dosage: TAKE TWO CAPSULES THREE TIMES A DAY. DOSE CAN B.TPP YC - PLEASE RECLASSIFY
     Route: 065
     Dates: start: 20221214
  14. MONTELUKAST [Concomitant]
     Active Substance: MONTELUKAST SODIUM
     Indication: Ill-defined disorder
     Dosage: TAKE ONE AT NIGHT
     Route: 065
     Dates: start: 20221214
  15. BECLOMETHASONE\FORMOTEROL [Concomitant]
     Active Substance: BECLOMETHASONE\FORMOTEROL
     Indication: Ill-defined disorder
     Dosage: USE AS DIRECTED, TPP YC - PLEASE RECLASSIFY
     Route: 065
     Dates: start: 20230505

REACTIONS (1)
  - Tendonitis [Unknown]
